FAERS Safety Report 5592902-8 (Version None)
Quarter: 2008Q1

REPORT INFORMATION
  Report Type: 
  Country: None (occurrence: None)
  Receive Date: 20080114
  Receipt Date: 20080114
  Transmission Date: 20080703
  Serious: Yes (Other)
  Sender: FDA-Public Use
  Company Number: None

PATIENT
  Sex: Male
  Weight: 86.1834 kg

DRUGS (3)
  1. ACCUPRIL [Suspect]
     Indication: BLOOD PRESSURE INCREASED
  2. STEROID [Concomitant]
  3. ALBUTEROL [Concomitant]

REACTIONS (2)
  - COGNITIVE DISORDER [None]
  - DEMENTIA ALZHEIMER'S TYPE [None]
